FAERS Safety Report 5974977-7 (Version None)
Quarter: 2008Q4

REPORT INFORMATION
  Report Type: 
  Country: None (occurrence: None)
  Receive Date: 20081128
  Receipt Date: 20061114
  Transmission Date: 20090506
  Serious: Yes (Disabling)
  Sender: FDA-Public Use
  Company Number: DSA_32758_2008

PATIENT
  Sex: Male

DRUGS (1)
  1. DILTIAZEM [Suspect]
     Indication: CORONARY ARTERY DISEASE
     Dosage: 90 MG BID ORAL
     Route: 048
     Dates: start: 20031201, end: 20081017

REACTIONS (3)
  - CONDITION AGGRAVATED [None]
  - NEPHROLITHIASIS [None]
  - RENAL COLIC [None]
